FAERS Safety Report 9473099 (Version 2)
Quarter: 2013Q3

REPORT INFORMATION
  Report Type: Spontaneous
  Country: US (occurrence: US)
  Receive Date: 20130823
  Receipt Date: 20130823
  Transmission Date: 20140515
  Serious: No
  Sender: FDA-Public Use
  Company Number: US-BRISTOL-MYERS SQUIBB COMPANY-17431487

PATIENT
  Age: 61 Year
  Sex: Male
  Weight: 80.72 kg

DRUGS (6)
  1. SPRYCEL [Suspect]
     Indication: CHRONIC MYELOID LEUKAEMIA
     Dosage: BEFORE DOSE:140MG THEN REDUCED TO 70MG
     Route: 048
     Dates: start: 20120801
  2. SPRYCEL [Suspect]
     Indication: LUNG NEOPLASM MALIGNANT
     Dosage: BEFORE DOSE:140MG THEN REDUCED TO 70MG
     Route: 048
     Dates: start: 20120801
  3. FLOMAX [Concomitant]
  4. NEURONTIN [Concomitant]
  5. LUMIGAN [Concomitant]
  6. MOTRIN [Concomitant]

REACTIONS (6)
  - Haemoglobin decreased [Not Recovered/Not Resolved]
  - Malaise [Not Recovered/Not Resolved]
  - Abdominal discomfort [Not Recovered/Not Resolved]
  - Diarrhoea [Not Recovered/Not Resolved]
  - Dyspnoea [Unknown]
  - Cyst [Unknown]
